FAERS Safety Report 10308170 (Version 2)
Quarter: 2014Q3

REPORT INFORMATION
  Report Type: Report from Study
  Country: US (occurrence: US)
  Receive Date: 20140716
  Receipt Date: 20140716
  Transmission Date: 20150326
  Serious: No
  Sender: FDA-Public Use
  Company Number: US-PFIZER INC-US-WYE-H15005110

PATIENT
  Age: 62 Year
  Sex: Female
  Weight: 86.1 kg

DRUGS (11)
  1. DESVENLAFAXINE SUCCINATE MONOHYDRATE [Suspect]
     Active Substance: DESVENLAFAXINE
     Indication: MENOPAUSAL SYMPTOMS
     Dosage: 50 MG, 1X/DAY
     Route: 048
     Dates: start: 20080807, end: 20080813
  2. NEXIUM [Concomitant]
     Active Substance: ESOMEPRAZOLE MAGNESIUM
     Dosage: UNK
     Dates: start: 2008
  3. ACETYLSALICYLIC ACID [Concomitant]
     Active Substance: ASPIRIN
     Dosage: UNK
     Dates: start: 2004
  4. VITAMIN D [Concomitant]
     Active Substance: CHOLECALCIFEROL
     Dosage: UNK
     Dates: start: 2005
  5. FENOFIBRATE. [Concomitant]
     Active Substance: FENOFIBRATE
     Dosage: UNK
     Dates: start: 200707
  6. ACTONEL [Concomitant]
     Active Substance: RISEDRONATE SODIUM
     Dosage: UNK
     Dates: start: 2004
  7. DESVENLAFAXINE SUCCINATE MONOHYDRATE [Suspect]
     Active Substance: DESVENLAFAXINE
     Dosage: 100 MG, 1X/DAY
     Route: 048
     Dates: start: 20080814
  8. TENORETIC [Concomitant]
     Active Substance: ATENOLOL\CHLORTHALIDONE
     Dosage: UNK
     Dates: start: 200607, end: 20090416
  9. METFORMIN [Concomitant]
     Active Substance: METFORMIN HYDROCHLORIDE
     Dosage: UNK
     Dates: start: 200707
  10. ZETIA [Concomitant]
     Active Substance: EZETIMIBE
     Dosage: UNK
     Dates: start: 200707
  11. FISH OIL, HYDROGENATED [Concomitant]
     Active Substance: FISH OIL, HYDROGENATED
     Dosage: UNK
     Dates: start: 200902

REACTIONS (1)
  - Electrocardiogram T wave abnormal [Recovered/Resolved]

NARRATIVE: CASE EVENT DATE: 20090206
